FAERS Safety Report 7127946-8 (Version None)
Quarter: 2010Q4

REPORT INFORMATION
  Report Type: 
  Country: None (occurrence: None)
  Receive Date: 20101130
  Receipt Date: 20101119
  Transmission Date: 20110411
  Serious: Yes (Other)
  Sender: FDA-Public Use
  Company Number: US-JNJFOC-20101107317

PATIENT
  Sex: Female
  Weight: 63.5 kg

DRUGS (15)
  1. REMICADE [Suspect]
     Indication: CROHN'S DISEASE
     Route: 042
  2. AZATHIOPRINE [Concomitant]
     Indication: CROHN'S DISEASE
     Route: 048
  3. COLAZAL [Concomitant]
     Indication: CROHN'S DISEASE
     Route: 048
  4. EXTENDED RELEASE METOPROLOL [Concomitant]
     Indication: HYPERTENSION
  5. SERTRALINE HYDROCHLORIDE [Concomitant]
     Indication: ANTIDEPRESSANT THERAPY
     Route: 048
  6. PREVACID [Concomitant]
     Indication: DYSPEPSIA
     Route: 048
  7. SIMVASTATIN [Concomitant]
     Indication: BLOOD CHOLESTEROL INCREASED
     Route: 048
  8. NASACORT AQ [Concomitant]
     Indication: MULTIPLE ALLERGIES
     Dosage: 1-2 SPRAYS EACH NOSTRIL ONCE DAILY
     Route: 045
  9. CLARITIN-D [Concomitant]
     Indication: MULTIPLE ALLERGIES
     Route: 048
  10. MULTI-VITAMINS [Concomitant]
     Indication: VITAMIN SUPPLEMENTATION
     Route: 048
  11. VITAMIN D [Concomitant]
     Indication: VITAMIN SUPPLEMENTATION
     Route: 048
  12. TYLENOL (CAPLET) [Concomitant]
     Indication: PAIN
     Dosage: 650 MG AT NIGHT AS NEEDED
     Route: 048
  13. BENADRYL [Concomitant]
     Indication: SLEEP DISORDER
     Dosage: 25 MG AT NIGHT AS NEEDED
     Route: 048
  14. XANAX [Concomitant]
     Indication: ANXIETY
     Dosage: 0.25 MG 3 TIMES DAILY AS NEEDED
     Route: 048
  15. LORAZEPAM [Concomitant]
     Indication: ANXIETY
     Route: 048

REACTIONS (6)
  - BLOOD CALCIUM ABNORMAL [None]
  - HEADACHE [None]
  - PROCTALGIA [None]
  - RASH [None]
  - SECRETION DISCHARGE [None]
  - SENSORY DISTURBANCE [None]
